FAERS Safety Report 7658893-0 (Version None)
Quarter: 2011Q3

REPORT INFORMATION
  Report Type: 
  Country: None (occurrence: None)
  Receive Date: 20110805
  Receipt Date: 20110803
  Transmission Date: 20111222
  Serious: Yes (Death, Other)
  Sender: FDA-Public Use
  Company Number: US-AMGEN-USASP2011030195

PATIENT
  Age: 75 Year
  Sex: Male

DRUGS (1)
  1. NPLATE [Suspect]
     Indication: IDIOPATHIC THROMBOCYTOPENIC PURPURA
     Dosage: 500 A?G, UNK
     Dates: start: 20110331, end: 20110331

REACTIONS (4)
  - CARDIAC FAILURE [None]
  - RENAL FAILURE CHRONIC [None]
  - HYPERTENSION [None]
  - RESPIRATORY FAILURE [None]
